FAERS Safety Report 7199385-5 (Version None)
Quarter: 2010Q4

REPORT INFORMATION
  Report Type: 
  Country: None (occurrence: None)
  Receive Date: 20101215
  Receipt Date: 20101206
  Transmission Date: 20110411
  Serious: Yes (Death, Hospitalization)
  Sender: FDA-Public Use
  Company Number: UTC-003041

PATIENT
  Sex: Male

DRUGS (2)
  1. REMODULIN [Suspect]
     Indication: PULMONARY ARTERIAL HYPERTENSION
     Dosage: (1 IN 1 MIN),SUBCUTANEOUS
     Route: 058
     Dates: start: 20100921, end: 20101001
  2. REMODULIN [Suspect]
     Dosage: (1 IN 1 MIN),INTRAVENOUS
     Route: 042
     Dates: start: 20101024, end: 20101127

REACTIONS (1)
  - DEATH [None]
